FAERS Safety Report 5739691-1 (Version None)
Quarter: 2008Q2

REPORT INFORMATION
  Report Type: 
  Country: None (occurrence: None)
  Receive Date: 20080513
  Receipt Date: 20080424
  Transmission Date: 20081010
  Serious: Yes (Life-Threatening)
  Sender: FDA-Public Use
  Company Number: 2008US000806

PATIENT
  Age: 59 Year
  Sex: Male

DRUGS (13)
  1. AMBISOME [Suspect]
     Indication: FEBRILE NEUTROPENIA
     Dosage: 50 MG, UID/QD IV NOS; 100 MG, UID/QD; IV NOS
     Route: 042
     Dates: start: 20070617, end: 20070618
  2. AMBISOME [Suspect]
     Indication: FEBRILE NEUTROPENIA
     Dosage: 50 MG, UID/QD IV NOS; 100 MG, UID/QD; IV NOS
     Route: 042
     Dates: start: 20070619, end: 20070724
  3. VANCOMYCIN HYDROCHLORIDE [Suspect]
     Indication: DRUG USE FOR UNKNOWN INDICATION
     Dosage: 1.5 G, UID/QD IV NOS
     Route: 042
     Dates: start: 20070616, end: 20070720
  4. MAXIPIME [Suspect]
     Indication: DRUG USE FOR UNKNOWN INDICATION
     Dosage: 4 G, UID/QD; IV NOS
     Route: 042
     Dates: start: 20070703, end: 20070706
  5. PROGRAF [Concomitant]
  6. POTASSIUM CHLORIDE [Concomitant]
  7. INTRALIPOS 10% (GLYCINE MAX SEED OIL) [Concomitant]
  8. MEROPEN (MEROPENEM) [Concomitant]
  9. PRIMAXIN [Concomitant]
  10. ACYCLOVIR [Concomitant]
  11. FAMOTIDINE [Concomitant]
  12. OMEPRAL (OMEPRAZOLE) [Concomitant]
  13. NEUPOGEN [Concomitant]

REACTIONS (8)
  - ANAEMIA [None]
  - BLOOD BILIRUBIN INCREASED [None]
  - BLOOD CREATININE DECREASED [None]
  - BLOOD UREA INCREASED [None]
  - BODY TEMPERATURE INCREASED [None]
  - HYPOKALAEMIA [None]
  - LIVER DISORDER [None]
  - PLATELET COUNT DECREASED [None]
